FAERS Safety Report 14026937 (Version 2)
Quarter: 2018Q1

REPORT INFORMATION
  Report Type: Spontaneous
  Country: US (occurrence: US)
  Receive Date: 20170929
  Receipt Date: 20180130
  Transmission Date: 20180508
  Serious: No
  Sender: FDA-Public Use
  Company Number: US-BIOMARINAP-US-2017-115552

PATIENT
  Sex: Male

DRUGS (1)
  1. ALDURAZYME [Suspect]
     Active Substance: LARONIDASE
     Indication: MUCOPOLYSACCHARIDOSIS I
     Dosage: 14.5 MG, QW
     Route: 041
     Dates: start: 20030625

REACTIONS (2)
  - Malaise [Unknown]
  - Sinusitis [Unknown]
